FAERS Safety Report 4566634-9 (Version None)
Quarter: 2005Q1

REPORT INFORMATION
  Report Type: 
  Country: None (occurrence: None)
  Receive Date: 20050126
  Receipt Date: 20050110
  Transmission Date: 20050727
  Serious: Yes (Hospitalization)
  Sender: FDA-Public Use
  Company Number: USA050187422

PATIENT
  Age: 87 Year
  Sex: Female

DRUGS (1)
  1. FORTEO [Suspect]
     Indication: OSTEOPOROSIS
     Dates: start: 20041027, end: 20041227

REACTIONS (21)
  - BLOOD PRESSURE INCREASED [None]
  - BONE DISORDER [None]
  - BONE PAIN [None]
  - CHEST PAIN [None]
  - DRUG HYPERSENSITIVITY [None]
  - DYSPNOEA [None]
  - FEELING ABNORMAL [None]
  - HAEMOGLOBIN DECREASED [None]
  - HALLUCINATION, VISUAL [None]
  - INJECTION SITE HAEMORRHAGE [None]
  - LUNG DISORDER [None]
  - MOBILITY DECREASED [None]
  - MUSCLE SPASMS [None]
  - NAUSEA [None]
  - PAIN IN EXTREMITY [None]
  - PHARMACEUTICAL PRODUCT COMPLAINT [None]
  - PNEUMONIA [None]
  - REFLEXES ABNORMAL [None]
  - TREMOR [None]
  - UNEVALUABLE EVENT [None]
  - URINARY INCONTINENCE [None]
